FAERS Safety Report 8807749 (Version 1)
Quarter: 2012Q4

REPORT INFORMATION
  Report Type: 
  Country: US (occurrence: US)
  Receive Date: 20120925
  Receipt Date: 20120925
  Transmission Date: 20130627
  Serious: Yes (Hospitalization)
  Sender: FDA-Public Use
  Company Number: US-B.I. PHARMACEUTICALS,INC./RIDGEFIELD-2012-BP-23063BP

PATIENT
  Age: 52 Year
  Sex: Female
  Weight: 46 kg

DRUGS (10)
  1. SPIRIVA [Suspect]
     Indication: CHRONIC OBSTRUCTIVE PULMONARY DISEASE
     Dosage: 18 mcg
     Route: 055
     Dates: start: 2011, end: 20120114
  2. COMBIVENT [Suspect]
     Indication: CHRONIC OBSTRUCTIVE PULMONARY DISEASE
     Route: 055
     Dates: start: 2006
  3. CIPRO [Concomitant]
     Indication: ANTIBIOTIC THERAPY
     Dosage: 1500 mg
     Route: 048
     Dates: start: 2012, end: 2012
  4. ATIVAN [Concomitant]
     Indication: ANXIETY
     Dosage: 2 mg
     Route: 048
  5. LORTAB [Concomitant]
     Indication: PAIN
     Route: 048
  6. PAXIL [Concomitant]
     Indication: ANXIETY
     Dosage: 10 mg
     Route: 048
  7. PROTONIX [Concomitant]
     Indication: GASTRIC ULCER
     Route: 048
     Dates: start: 2011
  8. PHENERGAN [Concomitant]
     Indication: NAUSEA
     Route: 048
     Dates: start: 2011
  9. AMBIEN [Concomitant]
     Indication: SLEEP DISORDER
     Dosage: 10 mg
     Route: 048
  10. TRILEPTAL [Concomitant]
     Indication: NERVE INJURY
     Dosage: 900 mg
     Route: 048
     Dates: start: 2008

REACTIONS (1)
  - Pneumonia [Recovered/Resolved]
